FAERS Safety Report 4922045-5 (Version None)
Quarter: 2006Q1

REPORT INFORMATION
  Report Type: 
  Country: None (occurrence: None)
  Receive Date: 20060222
  Receipt Date: 20060222
  Transmission Date: 20060701
  Serious: Yes (Hospitalization)
  Sender: FDA-Public Use
  Company Number: None

PATIENT
  Age: 74 Year
  Sex: Female
  Weight: 58.9676 kg

DRUGS (9)
  1. PHYTONADIONE [Suspect]
     Indication: INTERNATIONAL NORMALISED RATIO INCREASED
     Dosage: 5 MG IV OTO
     Route: 042
     Dates: start: 20051122
  2. LIPITOR [Concomitant]
  3. DOCUSATE [Concomitant]
  4. PROTONIX [Concomitant]
  5. ACYCLOVIR SODIUM [Concomitant]
  6. CEFTRIAXONE [Concomitant]
  7. LEVAQUIN [Concomitant]
  8. IRON [Concomitant]
  9. DILANTIN [Concomitant]

REACTIONS (10)
  - BURNING SENSATION [None]
  - CHILLS [None]
  - DYSPNOEA [None]
  - HYPOTENSION [None]
  - INFUSION RELATED REACTION [None]
  - NAUSEA [None]
  - PYREXIA [None]
  - RASH MACULAR [None]
  - TACHYCARDIA [None]
  - TREMOR [None]
